FAERS Safety Report 25024312 (Version 1)
Quarter: 2025Q1

REPORT INFORMATION
  Report Type: Spontaneous
  Country: US (occurrence: None)
  Receive Date: 20250228
  Receipt Date: 20250228
  Transmission Date: 20250408
  Serious: Yes (Hospitalization)
  Sender: FDA-CTU
  Company Number: None

PATIENT
  Age: 76 Year
  Sex: Male
  Weight: 60 kg

DRUGS (1)
  1. CHLORTHALIDONE [Suspect]
     Active Substance: CHLORTHALIDONE
     Indication: Hypertension
     Dosage: FREQUENCY : AT BEDTIME;?
     Route: 048

REACTIONS (3)
  - Blood creatinine increased [None]
  - Hyponatraemia [None]
  - Renal injury [None]

NARRATIVE: CASE EVENT DATE: 20241009
